FAERS Safety Report 10252705 (Version 1)
Quarter: 2014Q2

REPORT INFORMATION
  Report Type: Spontaneous
  Country: US (occurrence: US)
  Receive Date: 20140623
  Receipt Date: 20140623
  Transmission Date: 20141212
  Serious: No
  Sender: FDA-Public Use
  Company Number: US-ASTRAZENECA-2014SE40922

PATIENT
  Sex: Male

DRUGS (8)
  1. SEROQUEL [Suspect]
     Indication: BIPOLAR I DISORDER
     Route: 048
  2. SEROQUEL [Suspect]
     Indication: BIPOLAR I DISORDER
     Route: 048
  3. EFFEXOR [Suspect]
     Route: 065
  4. EFFEXOR [Suspect]
     Route: 065
  5. EFFEXOR [Suspect]
     Route: 065
  6. EFFEXOR [Suspect]
     Route: 065
  7. ANOTHER MEDICATION [Concomitant]
  8. ESCITALOPRAM [Concomitant]

REACTIONS (5)
  - Insomnia [Unknown]
  - Feeling abnormal [Unknown]
  - Dizziness [Unknown]
  - Somnolence [Unknown]
  - Drug ineffective [Unknown]
